FAERS Safety Report 21976521 (Version 2)
Quarter: 2023Q4

REPORT INFORMATION
  Report Type: Spontaneous
  Country: FR (occurrence: FR)
  Receive Date: 20230210
  Receipt Date: 20231208
  Transmission Date: 20240110
  Serious: Yes (Hospitalization)
  Sender: FDA-Public Use
  Company Number: None

PATIENT
  Age: 7 Year
  Sex: Female
  Weight: 18.4 kg

DRUGS (2)
  1. DOLIPRANE [Suspect]
     Active Substance: ACETAMINOPHEN
     Indication: Pyrexia
     Dosage: 1 WEIGHT DOSE EVERY 4 TO 6 HOURS WITHOUT EXCEEDING 4 INTAKES/DAY ?DOLIPRANE 2.4 PERCENT SUGAR-FREE,
     Route: 048
     Dates: start: 20230114
  2. TAMIFLU [Suspect]
     Active Substance: OSELTAMIVIR PHOSPHATE
     Indication: Influenza
     Dosage: 45MG X 2/J (7,5 ML X2/J) 6 MG/ML, POWDER FOR ORAL SUSPENSION
     Route: 048
     Dates: start: 20230115, end: 20230119

REACTIONS (1)
  - Hepatic cytolysis [Recovering/Resolving]

NARRATIVE: CASE EVENT DATE: 20230119
